FAERS Safety Report 6664295-6 (Version None)
Quarter: 2010Q2

REPORT INFORMATION
  Report Type: 
  Country: None (occurrence: None)
  Receive Date: 20100401
  Receipt Date: 20100323
  Transmission Date: 20101027
  Serious: Yes (Hospitalization, Other)
  Sender: FDA-Public Use
  Company Number: PHHY2010FR18842

PATIENT
  Sex: Male

DRUGS (11)
  1. EXELON [Suspect]
     Dosage: UNK
     Dates: start: 20091001
  2. AUGMENTIN '125' [Suspect]
  3. NORSET [Concomitant]
     Dosage: UNK
  4. AERIUS [Concomitant]
  5. ATARAX [Concomitant]
  6. CACIT D3 [Concomitant]
  7. MEMANTINE HCL [Concomitant]
  8. FORLAX [Concomitant]
  9. PANTOPRAZOLE [Concomitant]
  10. AMLOR [Concomitant]
  11. CERAT INALTERABLE [Concomitant]

REACTIONS (12)
  - ANAEMIA [None]
  - DERMATITIS CONTACT [None]
  - DRUG RASH WITH EOSINOPHILIA AND SYSTEMIC SYMPTOMS [None]
  - EOSINOPHILIA [None]
  - HEPATIC NEOPLASM MALIGNANT NON-RESECTABLE [None]
  - LEUKOCYTOSIS [None]
  - LUNG DISORDER [None]
  - PYREXIA [None]
  - RASH MACULO-PAPULAR [None]
  - RED BLOOD CELL SEDIMENTATION RATE INCREASED [None]
  - STAPHYLOCOCCAL INFECTION [None]
  - TOXIC SKIN ERUPTION [None]
